FAERS Safety Report 10041555 (Version 2)
Quarter: 2014Q2

REPORT INFORMATION
  Report Type: Spontaneous
  Country: IL (occurrence: IL)
  Receive Date: 20140327
  Receipt Date: 20140416
  Transmission Date: 20141212
  Serious: Yes (Hospitalization)
  Sender: FDA-Public Use
  Company Number: IL-NOVOPROD-404077

PATIENT
  Age: 39 Year
  Sex: Female

DRUGS (8)
  1. VICTOZA [Suspect]
     Indication: TYPE 2 DIABETES MELLITUS
     Dosage: 0.6 MG, QD
     Route: 065
     Dates: start: 20140227, end: 20140306
  2. NOVORAPID [Suspect]
     Indication: TYPE 2 DIABETES MELLITUS
     Dosage: UNK
     Route: 065
     Dates: end: 20140306
  3. LIPITOR [Concomitant]
     Dosage: UNK
     Route: 065
  4. OMEPRADEX [Concomitant]
     Dosage: UNK
     Route: 065
  5. VITAMIN D                          /00107901/ [Concomitant]
     Dosage: UNK
     Route: 065
  6. LYRICA [Concomitant]
     Dosage: UNK
     Route: 065
  7. LANTUS [Concomitant]
     Dosage: UNK
     Route: 065
  8. GLUCOMIN [Concomitant]
     Dosage: UNK
     Route: 065

REACTIONS (3)
  - Abdominal pain [Recovered/Resolved]
  - Nausea [Recovered/Resolved]
  - Hyperglycaemia [Recovered/Resolved]
